FAERS Safety Report 4785311-2 (Version None)
Quarter: 2005Q3

REPORT INFORMATION
  Report Type: 
  Country: None (occurrence: None)
  Receive Date: 20050929
  Receipt Date: 20050913
  Transmission Date: 20060218
  Serious: Yes (Death, Life-Threatening, Hospitalization)
  Sender: FDA-Public Use
  Company Number: GXKR2005DE01628

PATIENT
  Age: 67 Year
  Sex: Male
  Weight: 90 kg

DRUGS (3)
  1. ENALAPRIL HCT (NGX) (ENALAPRIL, HYDROCHLOROTHIAZIDE) TABLET, 10/25MG [Suspect]
     Indication: HYPERTENSION
     Dosage: 10/25 MG, ORAL
     Route: 048
  2. ALLOPURINOL [Concomitant]
  3. BISOPROLOL (BISOPROLOL) [Concomitant]

REACTIONS (7)
  - ALCOHOL WITHDRAWAL SYNDROME [None]
  - ANGIONEUROTIC OEDEMA [None]
  - BLOOD SODIUM INCREASED [None]
  - DRUG EFFECT DECREASED [None]
  - PNEUMONIA [None]
  - RENAL FAILURE [None]
  - RESPIRATORY ARREST [None]
